FAERS Safety Report 5735593-5 (Version None)
Quarter: 2008Q2

REPORT INFORMATION
  Report Type: 
  Country: None (occurrence: None)
  Receive Date: 20080512
  Receipt Date: 20080502
  Transmission Date: 20081010
  Serious: Yes (Other)
  Sender: FDA-Public Use
  Company Number: US-AMGEN-STX277366

PATIENT
  Sex: Female

DRUGS (1)
  1. ENBREL [Suspect]
     Indication: PSORIASIS
     Route: 065

REACTIONS (3)
  - HEPATITIS B SURFACE ANTIGEN POSITIVE [None]
  - HEPATITIS C POSITIVE [None]
  - TUBERCULIN TEST POSITIVE [None]
